FAERS Safety Report 16679548 (Version 1)
Quarter: 2019Q3

REPORT INFORMATION
  Report Type: Spontaneous
  Country: SE (occurrence: SE)
  Receive Date: 20190807
  Receipt Date: 20190807
  Transmission Date: 20191004
  Serious: Yes (Life-Threatening, Hospitalization, Disabling)
  Sender: FDA-Public Use
  Company Number: SE-MYLANLABS-2019M1073584

PATIENT
  Age: 74 Year
  Sex: Female
  Weight: 45 kg

DRUGS (21)
  1. ACETYLCYSTEINE. [Suspect]
     Active Substance: ACETYLCYSTEINE
     Indication: INCREASED VISCOSITY OF UPPER RESPIRATORY SECRETION
     Dosage: UNK
     Route: 065
  2. HALDOL [Interacting]
     Active Substance: HALOPERIDOL
     Indication: PRODUCT USED FOR UNKNOWN INDICATION
     Dosage: UNK
     Route: 065
  3. HEMINEVRIN                         /00027502/ [Interacting]
     Active Substance: CLOMETHIAZOLE
     Indication: CONFUSIONAL STATE
     Dosage: UNK
  4. DIAZEMULS NOVUM [Interacting]
     Active Substance: DIAZEPAM
     Indication: ANXIETY
     Dosage: UNK
     Route: 065
  5. ALVEDON [Interacting]
     Active Substance: ACETAMINOPHEN
     Indication: PAIN
     Dosage: UNK
  6. HEMINEVRIN                         /00027502/ [Interacting]
     Active Substance: CLOMETHIAZOLE
     Indication: SLEEP DISORDER
     Dosage: 300 MILLIGRAM,300 MG, ^50 MG^
  7. OXASCAND [Interacting]
     Active Substance: OXAZEPAM
     Indication: PRODUCT USED FOR UNKNOWN INDICATION
     Dosage: UNK
  8. DIMETICONE [Interacting]
     Active Substance: DIMETHICONE
     Indication: FLATULENCE
     Dosage: UNK
     Route: 065
  9. ATORVASTATIN [Interacting]
     Active Substance: ATORVASTATIN
     Indication: BLOOD CHOLESTEROL INCREASED
     Dosage: UNK
     Route: 065
  10. ACETYLSALICYLIC ACID [Interacting]
     Active Substance: ASPIRIN
     Indication: PAIN
     Dosage: UNK
     Route: 065
  11. TRAMADOL. [Interacting]
     Active Substance: TRAMADOL
     Indication: PAIN
     Dosage: UNK
     Route: 065
  12. LEVAXIN [Interacting]
     Active Substance: LEVOTHYROXINE SODIUM
     Indication: HYPOTHYROIDISM
     Dosage: UNK,100 OCH 25 ?G
  13. TROMBYL [Interacting]
     Active Substance: ASPIRIN
     Indication: ANTICOAGULANT THERAPY
     Dosage: UNK
     Route: 065
  14. NATRIUMKLORID [Interacting]
     Active Substance: SODIUM CHLORIDE
     Indication: PRODUCT USED FOR UNKNOWN INDICATION
     Dosage: UNK
  15. HEMINEVRIN                         /00027502/ [Interacting]
     Active Substance: CLOMETHIAZOLE
     Indication: ANXIETY
     Dosage: UNK
  16. HIRUDOID [Interacting]
     Active Substance: GLYCOSAMINOGLYCANS
     Indication: VARICOSE VEIN
     Dosage: UNK
     Route: 065
  17. METOPROLOL. [Interacting]
     Active Substance: METOPROLOL
     Indication: HYPERTENSION
     Dosage: UNK
     Route: 065
  18. ESOMEPRAZOLE. [Interacting]
     Active Substance: ESOMEPRAZOLE MAGNESIUM
     Indication: PRODUCT USED FOR UNKNOWN INDICATION
     Dosage: UNK
     Route: 065
  19. ISOSORBIDE MONONITRATE. [Interacting]
     Active Substance: ISOSORBIDE MONONITRATE
     Indication: VASODILATATION
     Dosage: UNK
     Route: 065
  20. PRAMIPEXOLE. [Interacting]
     Active Substance: PRAMIPEXOLE
     Indication: MUSCLE SPASMS
     Dosage: UNK
  21. GLYCERYL TRINITRATE [Interacting]
     Active Substance: NITROGLYCERIN
     Indication: VASODILATATION
     Dosage: UNK

REACTIONS (6)
  - Fatigue [Unknown]
  - Chronic fatigue syndrome [Unknown]
  - Toxicity to various agents [Unknown]
  - Drug interaction [Unknown]
  - Muscle atrophy [Unknown]
  - Sedation [Unknown]

NARRATIVE: CASE EVENT DATE: 2013
